FAERS Safety Report 7485754-2 (Version None)
Quarter: 2011Q2

REPORT INFORMATION
  Report Type: 
  Country: None (occurrence: None)
  Receive Date: 20110517
  Receipt Date: 20100818
  Transmission Date: 20111010
  Serious: Yes (Hospitalization, Other)
  Sender: FDA-Public Use
  Company Number: DE-GENENTECH-318605

PATIENT
  Age: 88 Year
  Sex: Female

DRUGS (1)
  1. LUCENTIS [Suspect]
     Indication: AGE-RELATED MACULAR DEGENERATION
     Dosage: UNK
     Route: 031
     Dates: start: 20100107

REACTIONS (8)
  - PANCREATIC CARCINOMA [None]
  - HYPERTENSION [None]
  - YELLOW SKIN [None]
  - BLOOD GLUCOSE ABNORMAL [None]
  - CHOLELITHIASIS [None]
  - FALL [None]
  - WEIGHT DECREASED [None]
  - MALAISE [None]
